FAERS Safety Report 15255501 (Version 1)
Quarter: 2018Q3

REPORT INFORMATION
  Report Type: Spontaneous
  Country: US (occurrence: US)
  Receive Date: 20180717
  Receipt Date: 20180717
  Transmission Date: 20181010
  Serious: No
  Sender: FDA-Public Use
  Company Number: None

PATIENT
  Age: 66 Year
  Sex: Female
  Weight: 49.5 kg

DRUGS (5)
  1. LAMOTRIGINE. [Suspect]
     Active Substance: LAMOTRIGINE
  2. FISH OIL [Concomitant]
     Active Substance: FISH OIL
  3. SIMVASTATIN. [Concomitant]
     Active Substance: SIMVASTATIN
  4. TRAVATAN Z [Concomitant]
     Active Substance: TRAVOPROST
  5. AZOPT [Concomitant]
     Active Substance: BRINZOLAMIDE

REACTIONS (1)
  - Drug dispensing error [None]

NARRATIVE: CASE EVENT DATE: 20180629
